FAERS Safety Report 10395659 (Version 1)
Quarter: 2014Q1

REPORT INFORMATION
  Report Type: Spontaneous
  Country: US (occurrence: None)
  Receive Date: 20130724
  Receipt Date: 20130724
  Transmission Date: 20141002
  Serious: Yes (Other)
  Sender: FDA-Public Use
  Company Number: PHEH2009US14764

PATIENT
  Age: 55 Year
  Sex: Female

DRUGS (1)
  1. GLEEVEC (IMATINIB) UNKNOWN [Suspect]
     Indication: GASTRIC CANCER
     Route: 048
     Dates: start: 20090808

REACTIONS (6)
  - Neoplasm progression [None]
  - Oedema peripheral [None]
  - Vomiting [None]
  - Nausea [None]
  - Skin depigmentation [None]
  - Malignant neoplasm progression [None]
